FAERS Safety Report 16619867 (Version 1)
Quarter: 2019Q3

REPORT INFORMATION
  Report Type: Spontaneous
  Country: US (occurrence: US)
  Receive Date: 20190723
  Receipt Date: 20190723
  Transmission Date: 20191004
  Serious: No
  Sender: FDA-Public Use
  Company Number: US-IGSA-SR10006765

PATIENT
  Age: 14 Year
  Sex: Female
  Weight: 76.4 kg

DRUGS (1)
  1. GAMUNEX-C [Suspect]
     Active Substance: HUMAN IMMUNOGLOBULIN G
     Indication: IMMUNODEFICIENCY
     Dosage: 20 G, UNK
     Route: 042
     Dates: start: 20170915, end: 20170915

REACTIONS (2)
  - Eyelid oedema [Unknown]
  - Rash [Unknown]

NARRATIVE: CASE EVENT DATE: 20170915
